FAERS Safety Report 14497415 (Version 2)
Quarter: 2019Q1

REPORT INFORMATION
  Report Type: Report from Study
  Country: IL (occurrence: IL)
  Receive Date: 20180207
  Receipt Date: 20190123
  Transmission Date: 20190417
  Serious: Yes (Other)
  Sender: FDA-Public Use
  Company Number: IL-ROCHE-2064086

PATIENT
  Age: 70 Year
  Sex: Female
  Weight: 50 kg

DRUGS (12)
  1. POTASSIUM CHLORIDE W/SODIUM CHLORIDE [Concomitant]
     Active Substance: POTASSIUM CHLORIDE\SODIUM CHLORIDE
     Indication: DEHYDRATION
     Route: 042
     Dates: start: 20171206, end: 20171210
  2. LIQUIFILM [Concomitant]
     Indication: EYE INFECTION
     Route: 065
     Dates: start: 20171218
  3. PREDNISONE. [Concomitant]
     Active Substance: PREDNISONE
     Indication: ALANINE AMINOTRANSFERASE INCREASED
  4. LAXADIN [Concomitant]
     Active Substance: BISACODYL
     Indication: CONSTIPATION
     Route: 048
  5. COBIMETINIB. [Suspect]
     Active Substance: COBIMETINIB
     Indication: MALIGNANT MELANOMA
     Dosage: DATE OF MOST RECENT DOSE OF COBIMETINIB PRIOR TO AE (ADVERSE EVENT) AND SAE (SERIOUS ADVESE EVENT) O
     Route: 048
     Dates: start: 20171122
  6. AMLODIPINE [Concomitant]
     Active Substance: AMLODIPINE BESYLATE
     Indication: HYPERTENSION
     Route: 048
     Dates: start: 20180404
  7. VEMURAFENIB. [Suspect]
     Active Substance: VEMURAFENIB
     Indication: MALIGNANT MELANOMA
     Dosage: TOTAL NUMBER OF TABLETS OF DOSE BLINDED VEMURAFENIB ADMINISTERED PRIOR TO AE ONSET: 4 TABLETS?DATE O
     Route: 048
     Dates: start: 20171122
  8. LIPITOR [Concomitant]
     Active Substance: ATORVASTATIN CALCIUM
     Indication: HYPERCHOLESTEROLAEMIA
     Route: 065
     Dates: start: 20160926
  9. ACTONEL [Concomitant]
     Active Substance: RISEDRONATE SODIUM
     Indication: OSTEOPOROSIS
     Route: 065
     Dates: start: 20161102
  10. OPTALGIN [Concomitant]
     Active Substance: METAMIZOLE
     Indication: MYALGIA
     Route: 048
     Dates: start: 20171210
  11. PREDNISONE. [Concomitant]
     Active Substance: PREDNISONE
     Indication: ASPARTATE AMINOTRANSFERASE INCREASED
     Route: 048
     Dates: start: 20180214
  12. OMEPRAZOLE. [Concomitant]
     Active Substance: OMEPRAZOLE
     Indication: ABDOMINAL PAIN UPPER
     Route: 048
     Dates: start: 20171204

REACTIONS (1)
  - Retinal detachment [Recovering/Resolving]

NARRATIVE: CASE EVENT DATE: 20171218
